FAERS Safety Report 6370948-X (Version None)
Quarter: 2009Q3

REPORT INFORMATION
  Report Type: 
  Country: None (occurrence: None)
  Receive Date: 20090923
  Receipt Date: 20080728
  Transmission Date: 20100115
  Serious: Yes (Other)
  Sender: FDA-Public Use
  Company Number: US-ASTRAZENECA-2006UW22423

PATIENT
  Age: 50 Year
  Sex: Female
  Weight: 122.5 kg

DRUGS (6)
  1. SEROQUEL [Suspect]
     Indication: BIPOLAR DISORDER
     Dosage: 800 MG AT PM, 300 MG AT AM
     Route: 048
     Dates: start: 20021101
  2. SEROQUEL [Suspect]
     Indication: DEPRESSION
     Dosage: 800 MG AT PM, 300 MG AT AM
     Route: 048
     Dates: start: 20021101
  3. ZYPREXA [Concomitant]
  4. TOPAMAX [Concomitant]
  5. LAMICTAL [Concomitant]
  6. LITHIUM [Concomitant]

REACTIONS (3)
  - DIABETES MELLITUS [None]
  - SUICIDAL IDEATION [None]
  - TARDIVE DYSKINESIA [None]
